FAERS Safety Report 23455169 (Version 3)
Quarter: 2024Q4

REPORT INFORMATION
  Report Type: Spontaneous
  Country: BR (occurrence: BR)
  Receive Date: 20240130
  Receipt Date: 20241017
  Transmission Date: 20250115
  Serious: Yes (Life-Threatening, Hospitalization, Disabling, Other)
  Sender: CELLTRION
  Company Number: BR-CELLTRION INC.-2024BR001809

PATIENT

DRUGS (15)
  1. INFLIXIMAB [Suspect]
     Active Substance: INFLIXIMAB
     Indication: Crohn^s disease
     Dosage: 3 AMPOULES EVERY 8 WEEKS
     Route: 042
     Dates: start: 20220921, end: 20231026
  2. INFLIXIMAB [Suspect]
     Active Substance: INFLIXIMAB
     Dosage: 3 AMPOULES EVERY 8 WEEKS
     Route: 042
     Dates: start: 20231026
  3. INFLIXIMAB [Suspect]
     Active Substance: INFLIXIMAB
     Dosage: 3 AMPOULES EVERY 8 WEEKS
     Route: 042
     Dates: start: 20240717
  4. INFLIXIMAB [Suspect]
     Active Substance: INFLIXIMAB
     Dosage: 3 AMPOULES EVERY 8 WEEKS
     Route: 042
     Dates: start: 20240926
  5. DONEPEZIL HYDROCHLORIDE [Concomitant]
     Active Substance: DONEPEZIL HYDROCHLORIDE
     Indication: Amnesia
     Dosage: 1 TABLET A DAY (STARTED: 5 YEARS)
     Route: 048
     Dates: start: 2008
  6. DONEPEZIL HYDROCHLORIDE [Concomitant]
     Active Substance: DONEPEZIL HYDROCHLORIDE
     Indication: Cerebrovascular accident
  7. ESCITALOPRAM OXALATE [Concomitant]
     Active Substance: ESCITALOPRAM OXALATE
     Indication: Depression
     Dosage: 1 PILL A DAY
     Route: 048
  8. ESCITALOPRAM [Concomitant]
     Active Substance: ESCITALOPRAM OXALATE
     Indication: Depression
     Dosage: 1 PILL A DAY STARTED 5 YEARS
     Route: 048
  9. LOSARTAN [Concomitant]
     Active Substance: LOSARTAN
     Indication: Hypertension
     Dosage: 2 PILLS A DAY, STARTED 7 YEARS
     Route: 048
  10. SIMVASTATIN [Concomitant]
     Active Substance: SIMVASTATIN
     Indication: Product used for unknown indication
     Dosage: 1 PILL A DAY (STOP DATE: DEC/2024)
     Route: 048
     Dates: start: 202408
  11. ESCITALOPRAM [Concomitant]
     Active Substance: ESCITALOPRAM OXALATE
     Indication: Depression
     Dosage: 1 PILL A DAY (START DATE: 10 YEARS)
     Route: 048
  12. ESCITALOPRAM [Concomitant]
     Active Substance: ESCITALOPRAM OXALATE
     Indication: Prophylaxis
  13. MEMANTINE HYDROCHLORIDE [Concomitant]
     Active Substance: MEMANTINE HYDROCHLORIDE
     Indication: Amnesia
     Dosage: 2 DF, QD
     Route: 048
  14. MEMANTINE HYDROCHLORIDE [Concomitant]
     Active Substance: MEMANTINE HYDROCHLORIDE
     Indication: Cerebrovascular accident
     Dosage: 2 DF, QD (STARTED 5 YEARS)
     Route: 048
  15. MEMANTINE HYDROCHLORIDE [Concomitant]
     Active Substance: MEMANTINE HYDROCHLORIDE
     Dosage: 1 DF, QD
     Route: 048
     Dates: start: 2008

REACTIONS (15)
  - Nosocomial infection [Recovering/Resolving]
  - Decreased appetite [Recovering/Resolving]
  - Bedridden [Unknown]
  - Choking [Recovering/Resolving]
  - Klebsiella urinary tract infection [Unknown]
  - Pneumonia [Recovering/Resolving]
  - Somnolence [Recovering/Resolving]
  - Urinary tract infection [Unknown]
  - Gait disturbance [Recovering/Resolving]
  - Cough [Recovering/Resolving]
  - Dyspnoea [Unknown]
  - Communication disorder [Recovering/Resolving]
  - Diarrhoea [Recovering/Resolving]
  - Depressed mood [Unknown]
  - Intentional dose omission [Unknown]

NARRATIVE: CASE EVENT DATE: 20231101
